FAERS Safety Report 17950344 (Version 1)
Quarter: 2020Q2

REPORT INFORMATION
  Report Type: Spontaneous
  Country: US (occurrence: US)
  Receive Date: 20200626
  Receipt Date: 20200626
  Transmission Date: 20200714
  Serious: No
  Sender: FDA-Public Use
  Company Number: US-GLAXOSMITHKLINE-US2020AMR110717

PATIENT
  Sex: Male

DRUGS (1)
  1. NUCALA [Suspect]
     Active Substance: MEPOLIZUMAB
     Indication: ASTHMA
     Dosage: UNK (EVERY 28 DAYS)
     Route: 065
     Dates: start: 2019, end: 2020

REACTIONS (3)
  - Dyspnoea [Unknown]
  - Pulmonary pain [Unknown]
  - Lung disorder [Unknown]
